FAERS Safety Report 4963608-0 (Version None)
Quarter: 2006Q1

REPORT INFORMATION
  Report Type: 
  Country: None (occurrence: None)
  Receive Date: 20060201
  Receipt Date: 20051116
  Transmission Date: 20060701
  Serious: No
  Sender: FDA-Public Use
  Company Number: 2005PV004735

PATIENT
  Age: 54 Year
  Sex: Female
  Weight: 106.5953 kg

DRUGS (12)
  1. BYETTA [Suspect]
     Indication: DIABETES MELLITUS NON-INSULIN-DEPENDENT
     Dosage: 10 MCG, BID, SC
     Route: 058
     Dates: start: 20051025, end: 20051116
  2. BYETTA [Suspect]
     Indication: DIABETES MELLITUS NON-INSULIN-DEPENDENT
     Dosage: 10 MCG, BID, SC
     Route: 058
     Dates: start: 20051128, end: 20051128
  3. LANTUS [Concomitant]
  4. GLUCOPHAGE [Concomitant]
  5. GLUCOTROL [Concomitant]
  6. CRESTOR [Concomitant]
  7. LEXAPRO [Concomitant]
  8. BEXTRA [Concomitant]
  9. ALLEGRA [Concomitant]
  10. PREMARIN [Concomitant]
  11. DESERYL [Concomitant]
  12. HUMALOG [Concomitant]

REACTIONS (9)
  - EYE SWELLING [None]
  - OEDEMA PERIPHERAL [None]
  - PHARYNGEAL OEDEMA [None]
  - PRURITUS [None]
  - SPEECH DISORDER [None]
  - SWELLING FACE [None]
  - SWOLLEN TONGUE [None]
  - URTICARIA GENERALISED [None]
  - VISION BLURRED [None]
